FAERS Safety Report 4851861-3 (Version None)
Quarter: 2005Q4

REPORT INFORMATION
  Report Type: 
  Country: None (occurrence: None)
  Receive Date: 20051213
  Receipt Date: 20051205
  Transmission Date: 20060501
  Serious: Yes (Hospitalization, Other)
  Sender: FDA-Public Use
  Company Number: PHBS2005YU18062

PATIENT
  Age: 82 Year
  Sex: Male
  Weight: 80 kg

DRUGS (2)
  1. COMTAN [Suspect]
     Indication: PARKINSONISM
     Dosage: 100 MG, BID
     Route: 048
     Dates: start: 20051001, end: 20051101
  2. MADOPAR [Concomitant]
     Dosage: 250 MG, TID

REACTIONS (4)
  - BRONCHOPNEUMONIA [None]
  - DRUG INEFFECTIVE [None]
  - HYPERTONIA [None]
  - IMMOBILE [None]
